FAERS Safety Report 21436975 (Version 1)
Quarter: 2022Q4

REPORT INFORMATION
  Report Type: Report from Study
  Country: AU (occurrence: AU)
  Receive Date: 20221010
  Receipt Date: 20221010
  Transmission Date: 20230113
  Serious: Yes (Death, Life-Threatening, Hospitalization, Other)
  Sender: FDA-Public Use
  Company Number: AU-MYLANLABS-2022M1110946

PATIENT
  Age: 78 Year
  Sex: Male

DRUGS (8)
  1. WARFARIN [Suspect]
     Active Substance: WARFARIN
     Indication: Atrial fibrillation
     Dosage: UNK
     Route: 065
  2. WARFARIN [Suspect]
     Active Substance: WARFARIN
     Dosage: 3-5 MG (VARIABLE DOSES)
     Route: 048
     Dates: start: 20210508, end: 20210720
  3. SPIRONOLACTONE [Concomitant]
     Active Substance: SPIRONOLACTONE
     Indication: Cardiac failure
     Dosage: 50 MILLIGRAM, BID
     Route: 048
     Dates: start: 2016
  4. AMIODARONE [Concomitant]
     Active Substance: AMIODARONE
     Indication: Atrial fibrillation
     Dosage: 300 MILLIGRAM, QD
     Route: 048
     Dates: start: 20181211
  5. FUROSEMIDE [Concomitant]
     Active Substance: FUROSEMIDE
     Indication: Cardiac failure
     Dosage: 80 MILLIGRAM, BID
     Route: 048
     Dates: start: 20210125
  6. DUTASTERIDE\TAMSULOSIN [Concomitant]
     Active Substance: DUTASTERIDE\TAMSULOSIN
     Indication: Prostate cancer
     Dosage: 500MG/400 MG, QD
     Route: 048
     Dates: start: 2018
  7. MAGNESIUM [Concomitant]
     Active Substance: MAGNESIUM
     Indication: Supplementation therapy
     Dosage: 500 MILLIGRAM, BID
     Route: 048
     Dates: start: 2020
  8. THYROXINE [Concomitant]
     Active Substance: LEVOTHYROXINE
     Indication: Hypothyroidism
     Dosage: 75 MICROGRAM, QD
     Route: 048
     Dates: start: 20200508

REACTIONS (5)
  - Escherichia sepsis [Fatal]
  - Urosepsis [Unknown]
  - Haematuria [Not Recovered/Not Resolved]
  - Fall [Unknown]
  - Subarachnoid haemorrhage [Unknown]

NARRATIVE: CASE EVENT DATE: 20210720
